FAERS Safety Report 10662176 (Version 1)
Quarter: 2014Q4

REPORT INFORMATION
  Report Type: Spontaneous
  Country: US (occurrence: US)
  Receive Date: 20141218
  Receipt Date: 20141218
  Transmission Date: 20150529
  Serious: No
  Sender: FDA-Public Use
  Company Number: US-ENDO PHARMACEUTICALS INC.-HYBI20130002

PATIENT
  Sex: Male

DRUGS (1)
  1. HYDROCODONE BITARTRATE/IBUPROFEN TABLETS 7.5MG/200MG [Suspect]
     Active Substance: HYDROCODONE BITARTRATE\IBUPROFEN
     Indication: MIGRAINE
     Dosage: 7.5/200 MG
     Route: 048

REACTIONS (1)
  - Drug ineffective [Unknown]
